FAERS Safety Report 7651015-1 (Version None)
Quarter: 2011Q3

REPORT INFORMATION
  Report Type: 
  Country: None (occurrence: None)
  Receive Date: 20110802
  Receipt Date: 20110729
  Transmission Date: 20111222
  Serious: Yes (Hospitalization, Other)
  Sender: FDA-Public Use
  Company Number: JP-PFIZER INC-2011063615

PATIENT
  Age: 73 Year
  Sex: Male
  Weight: 56.5 kg

DRUGS (5)
  1. TEMSIROLIMUS [Suspect]
     Dosage: 20 MG, WEEKLY
     Dates: start: 20101224
  2. BETAMETHASONE [Concomitant]
     Indication: DECREASED APPETITE
     Dosage: 1 MG, 1X/DAY
     Route: 048
     Dates: start: 20101029, end: 20101218
  3. TEMSIROLIMUS [Suspect]
     Indication: RENAL CELL CARCINOMA
     Dosage: 25 MG, WEEKLY
     Route: 042
     Dates: start: 20101210
  4. FAMOTIDINE [Concomitant]
     Indication: DECREASED APPETITE
     Dosage: 10 MG, 1X/DAY
     Dates: start: 20101029
  5. CHLOR-TRIMETON [Concomitant]
     Dosage: 10 MG, 1X/DAY ON DAY TEMSIROLIMUS WAS GIVEN
     Route: 042

REACTIONS (2)
  - NEUTROPENIA [None]
  - INTERSTITIAL LUNG DISEASE [None]
